FAERS Safety Report 6406760-2 (Version None)
Quarter: 2009Q4

REPORT INFORMATION
  Report Type: 
  Country: None (occurrence: None)
  Receive Date: 20091005
  Receipt Date: 20091001
  Transmission Date: 20100525
  Serious: No
  Sender: FDA-Public Use
  Company Number: IN-144858

PATIENT

DRUGS (1)
  1. WINRHO SDF [Suspect]
     Indication: THROMBOCYTOPENIC PURPURA
     Dosage: (50 UG/KG TOTAL INTRAVENOUS (NOT OTHERWISE SPECIFIED))
     Route: 042

REACTIONS (6)
  - HAEMOGLOBIN DECREASED [None]
  - HAEMORRHAGE [None]
  - INFLUENZA LIKE ILLNESS [None]
  - JAUNDICE [None]
  - POLYCHROMASIA [None]
  - SPHEROCYTIC ANAEMIA [None]
